FAERS Safety Report 23074752 (Version 2)
Quarter: 2023Q4

REPORT INFORMATION
  Report Type: Spontaneous
  Country: JP (occurrence: JP)
  Receive Date: 20231017
  Receipt Date: 20231018
  Transmission Date: 20240110
  Serious: Yes (Other)
  Sender: FDA-Public Use
  Company Number: JP-HEXAL-SDZ2023JP008255AA

PATIENT
  Age: 70 Year
  Sex: Female

DRUGS (14)
  1. CARBOPLATIN [Suspect]
     Active Substance: CARBOPLATIN
     Dosage: AUC 4
     Route: 041
  2. CARBOPLATIN [Suspect]
     Active Substance: CARBOPLATIN
     Indication: Lung carcinoma cell type unspecified stage IV
     Dosage: AUC 5
     Route: 041
  3. PEMETREXED [Suspect]
     Active Substance: PEMETREXED
     Dosage: 400 MG/M2, TIW
     Route: 041
  4. PEMETREXED [Suspect]
     Active Substance: PEMETREXED
     Indication: Lung carcinoma cell type unspecified stage IV
     Dosage: 500 MG/M2, TIW
     Route: 041
  5. DENOSUMAB [Concomitant]
     Active Substance: DENOSUMAB
     Indication: Metastases to bone
     Dosage: UNK
     Route: 065
  6. NICOTINIC ACID [Concomitant]
     Active Substance: NIACIN
     Indication: Product used for unknown indication
     Dosage: 100 MG, QD
     Route: 048
  7. OSIMERTINIB [Concomitant]
     Active Substance: OSIMERTINIB
     Indication: Back pain
     Route: 065
  8. VITAMINS [Concomitant]
     Active Substance: VITAMINS
     Indication: Product used for unknown indication
     Dosage: 1 G, QD
     Route: 048
  9. ACETAMINOPHEN [Concomitant]
     Active Substance: ACETAMINOPHEN
     Indication: Product used for unknown indication
     Dosage: 400 MG, TID
     Route: 048
  10. ATORVASTATIN [Interacting]
     Active Substance: ATORVASTATIN
     Indication: Dyslipidaemia
     Dosage: 10 MG, QD
     Route: 048
  11. ATORVASTATIN [Interacting]
     Active Substance: ATORVASTATIN
     Dosage: 5 MG, QD
     Route: 048
  12. GEFITINIB [Interacting]
     Active Substance: GEFITINIB
     Indication: Lung carcinoma cell type unspecified stage IV
     Dosage: 250 MG, QD
     Route: 048
  13. GEFITINIB [Interacting]
     Active Substance: GEFITINIB
     Dosage: 250 MG, QOD
     Route: 048
  14. GEFITINIB [Interacting]
     Active Substance: GEFITINIB
     Dosage: 250 MG, QOD
     Route: 048

REACTIONS (4)
  - Neutrophil count decreased [Recovering/Resolving]
  - Nausea [Recovering/Resolving]
  - Paronychia [Recovering/Resolving]
  - Blood creatine phosphokinase increased [Unknown]
